FAERS Safety Report 20151396 (Version 1)
Quarter: 2021Q4

REPORT INFORMATION
  Report Type: Spontaneous
  Country: NL (occurrence: NL)
  Receive Date: 20211206
  Receipt Date: 20211206
  Transmission Date: 20220303
  Serious: Yes (Other)
  Sender: FDA-Public Use
  Company Number: None

PATIENT
  Sex: Female
  Weight: 56 kg

DRUGS (4)
  1. SERTRALINE [Suspect]
     Active Substance: SERTRALINE HYDROCHLORIDE
     Indication: Anxiety
     Dosage: 100 MILLIGRAM, QD (1 X PER DAG 1 STUK)
     Dates: start: 20210701
  2. SERTRALINE [Suspect]
     Active Substance: SERTRALINE HYDROCHLORIDE
     Indication: Depression
     Dosage: 75 MILLIGRAM, QD (1 X PER DAG 1 STUK)
  3. BUDESONIDE\FORMOTEROL [Concomitant]
     Active Substance: BUDESONIDE\FORMOTEROL
     Dosage: UNK (INHALATIEPOEDER, 160/4,5 ?G/DOSIS (MICROGRAM PER DOSIS))
  4. OXAZEPAM [Concomitant]
     Active Substance: OXAZEPAM
     Dosage: 5 MILLIGRAM (TABLET, 5 MG (MILLIGRAM))

REACTIONS (2)
  - Suicidal ideation [Not Recovered/Not Resolved]
  - Autophobia [Not Recovered/Not Resolved]
